FAERS Safety Report 4704427-X (Version None)
Quarter: 2005Q2

REPORT INFORMATION
  Report Type: 
  Country: None (occurrence: None)
  Receive Date: 20050628
  Receipt Date: 20050613
  Transmission Date: 20051028
  Serious: Yes (Hospitalization)
  Sender: FDA-Public Use
  Company Number: DEU-2005-0001494

PATIENT
  Age: 81 Year
  Sex: Female
  Weight: 55 kg

DRUGS (15)
  1. OXYGESIC 10 MG (OXY CR TAB 10 MG) (OXYCODONE HYDROCHLORIDE)CR TABLET [Suspect]
     Indication: PAIN
     Dosage: SEE IMAGE
     Route: 048
     Dates: start: 20040706, end: 20040810
  2. OXYGESIC 10 MG (OXY CR TAB 10 MG) (OXYCODONE HYDROCHLORIDE)CR TABLET [Suspect]
     Indication: PAIN
     Dosage: SEE IMAGE
     Route: 048
     Dates: start: 20040811, end: 20041128
  3. OXYGESIC 10 MG (OXY CR TAB 10 MG) (OXYCODONE HYDROCHLORIDE)CR TABLET [Suspect]
     Indication: PAIN
     Dosage: SEE IMAGE
     Route: 048
     Dates: start: 20041129, end: 20041220
  4. MADOPAR (BENSERAZIDE HYDROCHLORIDE, LEVODOPA) [Concomitant]
  5. ISOMOL (SODIUM BICARBONATE, PTASSIUM CHLROIDE, SODIUM CHLORIDE, MACROG [Concomitant]
  6. TRAMADOL HCL [Concomitant]
  7. ENALAPRIL MALEATE [Concomitant]
  8. BETA-ACETYLDIGOXIN (BETA- ACETYLDIGOXIN) [Concomitant]
  9. METOPROLOL TARTRATE [Concomitant]
  10. FUROSEMIDE (METOPROLOL) [Concomitant]
  11. PANTOPROLOL (PANTOPRAZOLE) [Concomitant]
  12. CABERSERIL (CABERGOLINE) [Concomitant]
  13. LEVODOPA (LEVODOPA) [Concomitant]
  14. AMLODIPINE [Concomitant]
  15. MOVICOL (MACROGOL, SODIUM CHLORIDE, PTASSIUM CHLORIDE, SODIUM BICARBON [Concomitant]

REACTIONS (2)
  - DIVERTICULUM INTESTINAL [None]
  - DIVERTICULUM INTESTINAL HAEMORRHAGIC [None]
